FAERS Safety Report 16673543 (Version 1)
Quarter: 2019Q3

REPORT INFORMATION
  Report Type: Spontaneous
  Country: US (occurrence: US)
  Receive Date: 20190806
  Receipt Date: 20190806
  Transmission Date: 20191004
  Serious: No
  Sender: FDA-Public Use
  Company Number: US-MYLANLABS-2019M1069439

PATIENT
  Sex: Male
  Weight: 68.03 kg

DRUGS (3)
  1. TRAMADOL HYDROCHLORIDE EXTENDED-RELEASE TABLETS, USP [Suspect]
     Active Substance: TRAMADOL HYDROCHLORIDE
     Indication: BACK PAIN
     Dosage: 200 MILLIGRAM
     Dates: start: 201907, end: 20190722
  2. XARELTO [Concomitant]
     Active Substance: RIVAROXABAN
  3. TRAMADOL. [Concomitant]
     Active Substance: TRAMADOL

REACTIONS (1)
  - Drug ineffective [Unknown]

NARRATIVE: CASE EVENT DATE: 201907
